FAERS Safety Report 4405947-8 (Version None)
Quarter: 2004Q3

REPORT INFORMATION
  Report Type: 
  Country: None (occurrence: None)
  Receive Date: 20040723
  Receipt Date: 20040216
  Transmission Date: 20050211
  Serious: No
  Sender: FDA-Public Use
  Company Number: US-GLAXOSMITHKLINE-A0498331A

PATIENT
  Age: 75 Year
  Sex: Male

DRUGS (6)
  1. AVANDIA [Suspect]
     Dosage: 8MG PER DAY
     Route: 048
     Dates: start: 20031201
  2. ALTACE [Concomitant]
  3. CELEBREX [Concomitant]
  4. COZAAR [Concomitant]
  5. LESCOL XL [Concomitant]
  6. UROXATRAL [Concomitant]

REACTIONS (2)
  - BLISTER [None]
  - OEDEMA PERIPHERAL [None]
